FAERS Safety Report 6426234-2 (Version None)
Quarter: 2009Q4

REPORT INFORMATION
  Report Type: 
  Country: None (occurrence: None)
  Receive Date: 20091104
  Receipt Date: 20091028
  Transmission Date: 20100525
  Serious: Yes (Death, Hospitalization)
  Sender: FDA-Public Use
  Company Number: DE-ROCHE-522187

PATIENT
  Age: 71 Year
  Sex: Female
  Weight: 49 kg

DRUGS (21)
  1. CAPECITABINE [Suspect]
     Dosage: STRENGTH REPORTED AS 500 MG/150 MG. DOSING REGIMEN: 1250 MG/M2, BID, D1-14, Q21
     Route: 048
     Dates: start: 20070920, end: 20071003
  2. CAPECITABINE [Suspect]
     Route: 048
     Dates: start: 20071011, end: 20071019
  3. FOSAVANCE [Concomitant]
     Indication: OSTEOPOROSIS
     Dosage: FREQUNCY REPORTED AS: Q7.
     Route: 048
     Dates: start: 20060801
  4. CALCIUM/VITAMIN D [Concomitant]
     Indication: OSTEOPOROSIS
     Route: 048
     Dates: start: 20060801
  5. EFFORTIL [Concomitant]
     Indication: CARDIOVASCULAR EVENT PROPHYLAXIS
     Route: 048
     Dates: start: 20070929, end: 20070930
  6. STILNOX [Concomitant]
     Indication: SOMNOLENCE
     Route: 048
     Dates: start: 20071001, end: 20071005
  7. PERFALGAN [Concomitant]
     Indication: PAIN
     Route: 042
     Dates: start: 20070929, end: 20071002
  8. FRAGMIN [Concomitant]
     Indication: THROMBOSIS PROPHYLAXIS
     Route: 058
     Dates: start: 20070927, end: 20071005
  9. XYLOCAINE [Concomitant]
     Dosage: FREQUENCY: ONCE. INDICATION: LOCAL ANESTHESIA FOR PLEURODESIS.
     Route: 003
     Dates: start: 20070928, end: 20070928
  10. XYLOCAINE [Concomitant]
     Dosage: FREQUENCY: ONCE.
     Route: 003
     Dates: start: 20071002, end: 20071002
  11. BEPANTHEN [Concomitant]
     Dosage: INDICATION REPORTED AS NOSE CARE.
     Route: 003
     Dates: start: 20070927, end: 20070927
  12. DIPIDOLOR [Concomitant]
     Indication: PAIN
     Dosage: FREQUENCY: ONCE.
     Route: 042
     Dates: start: 20070927, end: 20070927
  13. CEFUROXIME [Concomitant]
     Route: 042
     Dates: start: 20070929, end: 20070929
  14. DULCOLAX [Concomitant]
     Dosage: DOSE: 1 SUPP
     Route: 054
     Dates: start: 20070930, end: 20070930
  15. CEFUROXIME [Concomitant]
     Indication: ANTIBIOTIC THERAPY
     Route: 048
     Dates: start: 20070929, end: 20071005
  16. LASIX [Concomitant]
     Route: 042
  17. FORTECORTIN [Concomitant]
     Route: 042
  18. PIPRIL [Concomitant]
     Route: 042
  19. MORPHINE [Concomitant]
     Route: 042
  20. FRAXIPARIN [Concomitant]
     Route: 058
  21. CONCOR [Concomitant]
     Indication: TACHYCARDIA
     Route: 048
     Dates: start: 20071117

REACTIONS (7)
  - DYSPNOEA [None]
  - GENERAL PHYSICAL HEALTH DETERIORATION [None]
  - METASTASES TO PLEURA [None]
  - PLEURAL EFFUSION [None]
  - PNEUMOTHORAX [None]
  - PYREXIA [None]
  - TACHYCARDIA [None]
